FAERS Safety Report 18579103 (Version 1)
Quarter: 2020Q4

REPORT INFORMATION
  Report Type: Spontaneous
  Country: US (occurrence: US)
  Receive Date: 20201203
  Receipt Date: 20201203
  Transmission Date: 20210114
  Serious: Yes (Hospitalization)
  Sender: FDA-Public Use
  Company Number: None

PATIENT
  Age: 50 Year
  Sex: Female

DRUGS (9)
  1. HYDROCYCHLOR [Concomitant]
  2. PREGABLIN [Concomitant]
     Active Substance: PREGABALIN
  3. OMPERAZOLE [Concomitant]
     Active Substance: OMEPRAZOLE
  4. PLAQUIENL [Concomitant]
  5. BONVA [Concomitant]
  6. CARAFATE [Concomitant]
     Active Substance: SUCRALFATE
  7. LEFLUNOMIDE. [Concomitant]
     Active Substance: LEFLUNOMIDE
  8. MYCOPHENOLATE [Suspect]
     Active Substance: MYCOPHENOLIC ACID
     Indication: MITRAL VALVE INCOMPETENCE
     Route: 048
     Dates: start: 20191231
  9. RESTASIS [Concomitant]
     Active Substance: CYCLOSPORINE

REACTIONS (3)
  - Unevaluable event [None]
  - Memory impairment [None]
  - Unresponsive to stimuli [None]

NARRATIVE: CASE EVENT DATE: 20201127
